FAERS Safety Report 18271318 (Version 3)
Quarter: 2021Q1

REPORT INFORMATION
  Report Type: Report from Study
  Country: None (occurrence: IL)
  Receive Date: 20200915
  Receipt Date: 20210201
  Transmission Date: 20210419
  Serious: Yes (Hospitalization)
  Sender: FDA-Public Use
  Company Number: IL-ABBVIE-20K-082-3564820-00

PATIENT
  Age: 84 Year
  Sex: Male

DRUGS (4)
  1. ENSURE [NUTRIENTS NOS] [Concomitant]
     Indication: PRODUCT USED FOR UNKNOWN INDICATION
  2. DUODOPA [Suspect]
     Active Substance: CARBIDOPA\LEVODOPA
     Indication: PARKINSON^S DISEASE
     Route: 050
     Dates: start: 20170228
  3. DOPICAR [Concomitant]
     Active Substance: CARBIDOPA\LEVODOPA
     Indication: PRODUCT USED FOR UNKNOWN INDICATION
  4. DUODOPA [Suspect]
     Active Substance: CARBIDOPA\LEVODOPA
     Dosage: MD 5ML CD 5ML/H ED 3ML NIGHT CD 5 ML/H FOR 24 HRS
     Route: 050

REACTIONS (7)
  - Sleep disorder [Unknown]
  - On and off phenomenon [Not Recovered/Not Resolved]
  - Haematuria [Unknown]
  - Arthralgia [Unknown]
  - Pain [Unknown]
  - Pelvic pain [Unknown]
  - Musculoskeletal stiffness [Unknown]

NARRATIVE: CASE EVENT DATE: 202009
